FAERS Safety Report 16405274 (Version 9)
Quarter: 2020Q3

REPORT INFORMATION
  Report Type: Report from Study
  Country: US (occurrence: US)
  Receive Date: 20190607
  Receipt Date: 20200708
  Transmission Date: 20201102
  Serious: Yes (Hospitalization)
  Sender: FDA-Public Use
  Company Number: US-ACTELION-A-NJ2019-186769

PATIENT
  Age: 75 Year
  Sex: Female

DRUGS (3)
  1. UPTRAVI [Suspect]
     Active Substance: SELEXIPAG
     Dosage: 600 MCG, BID
     Route: 048
     Dates: start: 20180925
  2. UPTRAVI [Suspect]
     Active Substance: SELEXIPAG
     Indication: PULMONARY ARTERIAL HYPERTENSION
     Dosage: 800 MCG, BID
     Route: 048
  3. OPSUMIT [Suspect]
     Active Substance: MACITENTAN
     Indication: PULMONARY ARTERIAL HYPERTENSION
     Dosage: 10 MG, QD
     Route: 048
     Dates: start: 20180920

REACTIONS (7)
  - Gastrointestinal haemorrhage [Recovered/Resolved]
  - Dieulafoy^s vascular malformation [Recovered/Resolved]
  - Dizziness [Unknown]
  - Ulcer haemorrhage [Recovered/Resolved]
  - Gastritis [Recovered/Resolved]
  - Haemoglobin decreased [Unknown]
  - Fall [Unknown]

NARRATIVE: CASE EVENT DATE: 201812
